FAERS Safety Report 10727976 (Version 1)
Quarter: 2015Q1

REPORT INFORMATION
  Report Type: Spontaneous
  Country: CN (occurrence: CN)
  Receive Date: 20150121
  Receipt Date: 20150121
  Transmission Date: 20150721
  Serious: Yes (Other)
  Sender: FDA-Public Use
  Company Number: CN-PFIZER INC-2015022366

PATIENT
  Age: 51 Year
  Sex: Male

DRUGS (1)
  1. CELEBREX [Suspect]
     Active Substance: CELECOXIB
     Indication: ARTHRALGIA
     Dosage: ONE CAPSULE ONCE A DAY AFTER MEAL
     Route: 048
     Dates: start: 20140723, end: 20140724

REACTIONS (7)
  - Drug hypersensitivity [Recovering/Resolving]
  - Measles [Recovering/Resolving]
  - Rash [Recovering/Resolving]
  - Eyelid oedema [Recovering/Resolving]
  - Erythema [Recovering/Resolving]
  - Pruritus [Recovering/Resolving]
  - Swelling face [Recovering/Resolving]

NARRATIVE: CASE EVENT DATE: 20140723
